FAERS Safety Report 12561974 (Version 1)
Quarter: 2016Q3

REPORT INFORMATION
  Report Type: Spontaneous
  Country: US (occurrence: US)
  Receive Date: 20160715
  Receipt Date: 20160715
  Transmission Date: 20161109
  Serious: No
  Sender: FDA-Public Use
  Company Number: US-009507513-1607USA001829

PATIENT
  Age: 31 Year
  Sex: Female

DRUGS (9)
  1. POLYSACC IRON COMPLEX [Suspect]
     Active Substance: FERRIC POLYSACCHARIDE COMPLEX
     Dosage: UNK
  2. RANITIDINE. [Suspect]
     Active Substance: RANITIDINE
  3. DOXYLAMINE SUCCINATE. [Suspect]
     Active Substance: DOXYLAMINE SUCCINATE
     Indication: SLEEP DISORDER
     Dosage: UNK
  4. ACETAMINOPHEN. [Concomitant]
     Active Substance: ACETAMINOPHEN
  5. URSODIOL. [Suspect]
     Active Substance: URSODIOL
     Dosage: UNK
  6. AMPICILLIN [Concomitant]
     Active Substance: AMPICILLIN
  7. PROVENTIL [Suspect]
     Active Substance: ALBUTEROL
     Dosage: UNK
  8. GENTAMICIN SULFATE. [Concomitant]
     Active Substance: GENTAMICIN SULFATE
  9. OXYTOCIN. [Concomitant]
     Active Substance: OXYTOCIN

REACTIONS (13)
  - Caesarean section [None]
  - Vomiting [None]
  - Premature labour [None]
  - Feeling abnormal [None]
  - Polymorphic eruption of pregnancy [None]
  - Decreased appetite [None]
  - Nausea [None]
  - Exposure during pregnancy [Recovered/Resolved]
  - Pollakiuria [None]
  - Pyrexia [None]
  - Premature delivery [None]
  - Maternal exposure during pregnancy [None]
  - Twin pregnancy [None]
